FAERS Safety Report 16036483 (Version 1)
Quarter: 2019Q1

REPORT INFORMATION
  Report Type: Spontaneous
  Country: US (occurrence: US)
  Receive Date: 20190305
  Receipt Date: 20190305
  Transmission Date: 20190418
  Serious: No
  Sender: FDA-Public Use
  Company Number: US-ALLERGAN-1904052US

PATIENT
  Age: 72 Year
  Sex: Female

DRUGS (2)
  1. ESTRACE [Suspect]
     Active Substance: ESTRADIOL
     Indication: VULVOVAGINAL DRYNESS
     Dosage: 1GM PER DAY FOR 2 WEEKS, THEN 3-4
     Route: 067
     Dates: start: 20190122, end: 20190127
  2. ON QUITE A FEW MEDICATIONS [Concomitant]

REACTIONS (4)
  - Incorrect dose administered [Unknown]
  - Product formulation issue [Unknown]
  - Headache [Recovered/Resolved]
  - Diarrhoea [Recovered/Resolved]

NARRATIVE: CASE EVENT DATE: 201901
